FAERS Safety Report 9139212 (Version 1)
Quarter: 2013Q1

REPORT INFORMATION
  Report Type: Spontaneous
  Country: GB (occurrence: GB)
  Receive Date: 20130305
  Receipt Date: 20130305
  Transmission Date: 20140127
  Serious: Yes (Other)
  Sender: FDA-Public Use
  Company Number: PHFR2013GB001464

PATIENT
  Sex: Male

DRUGS (3)
  1. DIOVAN [Suspect]
     Dosage: 40 MG, QD
  2. DIOVAN [Suspect]
     Dosage: 80 MG QD (IN THE MORNING)
  3. DIOVAN [Suspect]
     Dosage: 40 MG, BID, (IN THE MORNING AND IN THE EVENING)

REACTIONS (6)
  - Benign prostatic hyperplasia [Unknown]
  - Epistaxis [Unknown]
  - Migraine [Unknown]
  - Hyperkalaemia [Unknown]
  - Fatigue [Unknown]
  - Wrong technique in drug usage process [Unknown]
